FAERS Safety Report 26150876 (Version 1)
Quarter: 2025Q4

REPORT INFORMATION
  Report Type: Spontaneous
  Country: GB (occurrence: GB)
  Receive Date: 20251212
  Receipt Date: 20251212
  Transmission Date: 20260118
  Serious: Yes (Disabling, Other)
  Sender: ACCORD
  Company Number: None

PATIENT
  Age: 67 Year
  Sex: Female
  Weight: 113 kg

DRUGS (8)
  1. ATORVASTATIN [Suspect]
     Active Substance: ATORVASTATIN
     Indication: Product used for unknown indication
     Dates: start: 20230102, end: 20250312
  2. Sebco [Concomitant]
     Dosage: APPLY TO SKIN. LEAVE ON FOR ONE HOUR
     Dates: start: 20250402, end: 20250515
  3. PREDNISOLONE [Concomitant]
     Active Substance: PREDNISOLONE
     Indication: Adverse drug reaction
     Dosage: AS PER NEUROL ADVICE TITRATING UP TO MAX 50MG ALTERNATE DAYS
     Dates: start: 20250305, end: 20250424
  4. APIXABAN [Concomitant]
     Active Substance: APIXABAN
     Indication: Atrial fibrillation
     Dosage: ONE TO BE TAKEN TWICE A DAY. FOR ANNUAL BLOOD TESTS AND WEIGHT
     Dates: start: 20250306
  5. BETAMETHASONE DIPROPIONATE\CALCIPOTRIENE [Concomitant]
     Active Substance: BETAMETHASONE DIPROPIONATE\CALCIPOTRIENE
     Indication: Adverse drug reaction
     Dosage: STRENGTH: 50MICROGRAMS/G/0.5 MG/G
     Dates: start: 20250312, end: 20250424
  6. TRIMOVATE [Concomitant]
     Active Substance: CLOBETASONE BUTYRATE\NYSTATIN\OXYTETRACYCLINE CALCIUM
     Dosage: APPLY THIN LAYER TWICE DAILY TO AFFECTED AREA FOR ONE WEEK. KEEP AREA AS DRY AS POSSIBLE
     Dates: start: 20250402, end: 20250515
  7. PREDNISOLONE [Concomitant]
     Active Substance: PREDNISOLONE
     Indication: Adverse drug reaction
     Dosage: 4 TABLETS ALTERNATE DAYS (IN ADDITION TO 5MG TABLETS - TOTAL DOSE 9MG ALTERNATE DAYS)
     Dates: start: 20250522
  8. PREDNISOLONE [Concomitant]
     Active Substance: PREDNISOLONE
     Indication: Adverse drug reaction
     Dosage: ONE TABLET ALTERNATE DAYS

REACTIONS (3)
  - Myasthenia gravis [Recovering/Resolving]
  - Mastication disorder [Recovering/Resolving]
  - Diplopia [Recovering/Resolving]

NARRATIVE: CASE EVENT DATE: 20230703
